FAERS Safety Report 6018711-3 (Version None)
Quarter: 2008Q4

REPORT INFORMATION
  Report Type: 
  Country: None (occurrence: None)
  Receive Date: 20081222
  Receipt Date: 20081208
  Transmission Date: 20090506
  Serious: Yes (Hospitalization)
  Sender: FDA-Public Use
  Company Number: CLOF-1000293

PATIENT
  Age: 72 Year
  Sex: Female
  Weight: 48 kg

DRUGS (12)
  1. CLOFARABINE (CLOFARABINE) TABLET [Suspect]
     Indication: ACUTE LEUKAEMIA
     Dosage: UNK, QD, UNK
     Dates: start: 20080908, end: 20080921
  2. PERCOCET [Suspect]
     Indication: PAIN
  3. PERCOCET (OXYCODONE TEREPHTHALATE, PARACETAMOL) [Concomitant]
  4. ZOSYN [Concomitant]
  5. TOBRAMYCIN [Concomitant]
  6. BENADRYL [Concomitant]
  7. ACETAMINOPHEN [Concomitant]
  8. HYDROCODONE (HYDROCHODONE) [Concomitant]
  9. ALLOPURINOL [Concomitant]
  10. COMPAZINE (PROCHLORPERAZINE MALEATE) [Concomitant]
  11. CIPRO [Concomitant]
  12. DOCUSATE (DOCUSATE) [Concomitant]

REACTIONS (35)
  - ACINETOBACTER INFECTION [None]
  - BLOOD CHLORIDE DECREASED [None]
  - BLOOD CREATININE INCREASED [None]
  - BLOOD SODIUM DECREASED [None]
  - BLOOD UREA INCREASED [None]
  - BONE MARROW FAILURE [None]
  - CHOLELITHIASIS [None]
  - COMPUTERISED TOMOGRAM ABNORMAL [None]
  - CONDITION AGGRAVATED [None]
  - CULTURE POSITIVE [None]
  - DIARRHOEA [None]
  - ERYTHEMA [None]
  - FEBRILE NEUTROPENIA [None]
  - GASTRIC HAEMORRHAGE [None]
  - GASTRIC ULCER [None]
  - HAEMATOCRIT DECREASED [None]
  - HAEMOGLOBIN DECREASED [None]
  - HEART RATE INCREASED [None]
  - HIATUS HERNIA [None]
  - HYPERTENSION [None]
  - HYPOKALAEMIA [None]
  - NAUSEA [None]
  - NEUTROPHIL COUNT DECREASED [None]
  - OESOPHAGEAL PAIN [None]
  - OESOPHAGEAL ULCER [None]
  - OESOPHAGOSCOPY ABNORMAL [None]
  - PERICARDIAL EFFUSION [None]
  - PLATELET COUNT DECREASED [None]
  - RED BLOOD CELL COUNT DECREASED [None]
  - RENAL VESSEL DISORDER [None]
  - SPLENIC CYST [None]
  - SPLENOMEGALY [None]
  - VASCULAR CALCIFICATION [None]
  - VOMITING [None]
  - WHITE BLOOD CELL COUNT DECREASED [None]
